FAERS Safety Report 9100367 (Version 1)
Quarter: 2013Q1

REPORT INFORMATION
  Report Type: Spontaneous
  Country: US (occurrence: US)
  Receive Date: 20130214
  Receipt Date: 20130214
  Transmission Date: 20140127
  Serious: Yes (Hospitalization)
  Sender: FDA-Public Use
  Company Number: US-BAYER-2013-019247

PATIENT
  Age: 44 Year
  Sex: Female
  Weight: 59.86 kg

DRUGS (5)
  1. BEYAZ [Suspect]
  2. YAZ [Suspect]
  3. LISINOPRIL/HCTZ [Concomitant]
     Dosage: 10 - 12.5 MG
     Route: 048
     Dates: start: 20120327
  4. NAPROXEN [Concomitant]
  5. MAXALT [Concomitant]

REACTIONS (1)
  - Cerebrovascular accident [None]
